FAERS Safety Report 6984784 (Version 2)
Quarter: 2014Q1

REPORT INFORMATION
  Report Type: Spontaneous
  Country: US (occurrence: US)
  Receive Date: 20090501
  Receipt Date: 20140310
  Transmission Date: 20141002
  Serious: Yes (Hospitalization)
  Sender: FDA-Public Use
  Company Number: US-ALEXION-A200700083

PATIENT
  Age: 70 Year
  Sex: Male
  Weight: 76 kg

DRUGS (32)
  1. SOLIRIS 300MG [Suspect]
     Indication: PAROXYSMAL NOCTURNAL HAEMOGLOBINURIA
     Dosage: 600 MG, SINGLE
     Route: 042
     Dates: start: 20070925, end: 20070925
  2. SOLIRIS 300MG [Suspect]
     Dosage: 600 MG, SINGLE
     Route: 042
     Dates: start: 20071002, end: 20071002
  3. SOLIRIS 300MG [Suspect]
     Dosage: 600 MG, SINGLE
     Route: 042
     Dates: start: 20071009, end: 20071009
  4. SOLIRIS 300MG [Suspect]
     Dosage: 600 MG, SINGLE
     Route: 042
     Dates: start: 20071016, end: 20071016
  5. SOLIRIS 300MG [Suspect]
     Dosage: 900 MG, SINGLE
     Route: 042
     Dates: start: 20071023, end: 20071023
  6. SOLIRIS 300MG [Suspect]
     Dosage: 900 MG, SINGLE
     Route: 042
     Dates: start: 20071106, end: 20071106
  7. SOLIRIS 300MG [Suspect]
     Dosage: 900 MG, SINGLE
     Route: 042
     Dates: start: 20071120, end: 20071120
  8. SOLIRIS 300MG [Suspect]
     Dosage: 900 MG, SINGLE
     Route: 042
     Dates: start: 20071204, end: 20071204
  9. SOLIRIS 300MG [Suspect]
     Dosage: 900 MG, SINGLE
     Route: 042
     Dates: start: 20071221, end: 20071221
  10. SOLIRIS 300MG [Suspect]
     Dosage: 900 MG, SINGLE
     Route: 042
     Dates: start: 20080102, end: 20080102
  11. SOLIRIS 300MG [Suspect]
     Dosage: 900 MG, SINGLE
     Route: 042
     Dates: start: 20080117, end: 20080117
  12. SOLIRIS 300MG [Suspect]
     Dosage: 900 MG, SINGLE
     Route: 042
     Dates: start: 20080131, end: 20080131
  13. SOLIRIS 300MG [Suspect]
     Dosage: 900 MG, SINGLE
     Route: 042
     Dates: start: 20080212, end: 20080212
  14. SOLIRIS 300MG [Suspect]
     Dosage: 900 MG, SINGLE
     Route: 042
     Dates: start: 20080226, end: 20080226
  15. SOLIRIS 300MG [Suspect]
     Dosage: 900 MG, SINGLE
     Route: 042
     Dates: start: 20080311, end: 20080311
  16. SOLIRIS 300MG [Suspect]
     Dosage: 900 MG, SINGLE
     Route: 042
     Dates: start: 20080325, end: 20080325
  17. SOLIRIS 300MG [Suspect]
     Dosage: 900 MG, SINGLE
     Route: 042
     Dates: start: 20080408, end: 20080408
  18. SOLIRIS 300MG [Suspect]
     Dosage: 900 MG, SINGLE
     Route: 042
     Dates: start: 20080422, end: 20080422
  19. SOLIRIS 300MG [Suspect]
     Dosage: 900 MG, SINGLE
     Route: 042
     Dates: start: 20080506, end: 20080506
  20. SOLIRIS 300MG [Suspect]
     Dosage: 900 MG, SINGLE
     Route: 042
     Dates: start: 20080520, end: 20080520
  21. TOPAMAX [Concomitant]
     Indication: MIGRAINE
     Dosage: UNK
  22. VITAMIN B12                        /00056201/ [Concomitant]
  23. WARFARIN [Concomitant]
     Indication: ANTICOAGULANT THERAPY
     Dosage: UNK
     Dates: end: 200712
  24. WARFARIN [Concomitant]
     Dosage: 5 MG, QD
     Dates: start: 20071223
  25. PROCRIT                            /00909301/ [Concomitant]
     Indication: ANAEMIA
     Dosage: UNK
     Dates: start: 20080408, end: 20080408
  26. PROCRIT                            /00909301/ [Concomitant]
     Dates: start: 20080422, end: 20080422
  27. PROCRIT                            /00909301/ [Concomitant]
     Dates: start: 20080429, end: 20080429
  28. PROCRIT                            /00909301/ [Concomitant]
     Dates: start: 20080506, end: 20080506
  29. PROCRIT                            /00909301/ [Concomitant]
     Dates: start: 20080513, end: 20080513
  30. PROCRIT                            /00909301/ [Concomitant]
     Dates: start: 20080520, end: 20080520
  31. PROCRIT                            /00909301/ [Concomitant]
     Dates: start: 20080603, end: 20080603
  32. PROCRIT                            /00909301/ [Concomitant]
     Dates: start: 20080610

REACTIONS (11)
  - Prothrombin time prolonged [Recovered/Resolved]
  - Therapeutic response unexpected [Not Recovered/Not Resolved]
  - Faeces discoloured [Recovered/Resolved]
  - Therapeutic response unexpected [Not Recovered/Not Resolved]
  - Influenza [Recovered/Resolved]
  - Haemolysis [Unknown]
  - Stress [Unknown]
  - Diarrhoea [Recovered/Resolved]
  - Pyrexia [Recovered/Resolved]
  - Pain in extremity [Unknown]
  - Haemoglobin decreased [Recovered/Resolved]
